FAERS Safety Report 11930637 (Version 2)
Quarter: 2016Q1

REPORT INFORMATION
  Report Type: Spontaneous
  Country: JP (occurrence: JP)
  Receive Date: 20160120
  Receipt Date: 20160209
  Transmission Date: 20160526
  Serious: Yes (Other)
  Sender: FDA-Public Use
  Company Number: JP-UCBSA-2015026409

PATIENT
  Age: 80 Year
  Sex: Male

DRUGS (17)
  1. LANTUS [Concomitant]
     Active Substance: INSULIN GLARGINE
     Indication: PRODUCT USED FOR UNKNOWN INDICATION
     Dosage: UNK
  2. OPALMON [Concomitant]
     Active Substance: LIMAPROST
     Indication: PRODUCT USED FOR UNKNOWN INDICATION
     Dosage: UNK
  3. NEUPRO [Suspect]
     Active Substance: ROTIGOTINE
     Dosage: DAILY DOSE: 2 MG/24 HR
     Route: 062
     Dates: start: 20150806, end: 201508
  4. AMLODIN [Concomitant]
     Active Substance: AMLODIPINE BESYLATE
     Indication: PRODUCT USED FOR UNKNOWN INDICATION
     Dosage: UNK
  5. INSULIN [Concomitant]
     Active Substance: INSULIN NOS
     Indication: DIABETES MELLITUS
  6. NOVORAPID [Concomitant]
     Active Substance: INSULIN ASPART
     Indication: PRODUCT USED FOR UNKNOWN INDICATION
     Dosage: UNK
  7. NEUPRO [Suspect]
     Active Substance: ROTIGOTINE
     Indication: DIABETIC NEUROPATHY
     Dosage: DAILY DOSE: 2 MG/24 HR
     Route: 062
     Dates: start: 20150715, end: 201507
  8. NEUPRO [Suspect]
     Active Substance: ROTIGOTINE
     Dosage: 2 MG/24 HR+1 MG/24 HR-3 MG/24 HR
     Route: 062
     Dates: start: 20150723, end: 20150805
  9. MOHRUS [Concomitant]
     Active Substance: KETOPROFEN
     Indication: PRODUCT USED FOR UNKNOWN INDICATION
     Dosage: UNK
  10. IRBETAN [Concomitant]
     Active Substance: IRBESARTAN
     Indication: PRODUCT USED FOR UNKNOWN INDICATION
     Dosage: UNK
  11. URIEF [Concomitant]
     Active Substance: SILODOSIN
     Indication: PRODUCT USED FOR UNKNOWN INDICATION
     Dosage: UNK
  12. MEILAX [Concomitant]
     Active Substance: ETHYL LOFLAZEPATE
     Indication: PRODUCT USED FOR UNKNOWN INDICATION
     Dosage: UNK
  13. NEUPRO [Suspect]
     Active Substance: ROTIGOTINE
     Dosage: 2 MG/24 HR+1 MG/24 HR-3 MG/24 HR
     Route: 062
     Dates: start: 20150824, end: 201509
  14. NEUPRO [Suspect]
     Active Substance: ROTIGOTINE
     Dosage: 4MG/24 HR DAILY DOSE
     Route: 062
     Dates: start: 201509
  15. GABAPENTIN ENACARBIL [Suspect]
     Active Substance: GABAPENTIN ENACARBIL
     Indication: PRODUCT USED FOR UNKNOWN INDICATION
     Dosage: UNK
     Route: 048
  16. NEUPRO [Suspect]
     Active Substance: ROTIGOTINE
     Indication: RESTLESS LEGS SYNDROME
     Dosage: DAILY DOSE: 1 MG/24 HR
     Route: 062
     Dates: start: 20150710, end: 20150714
  17. LEXAPRO [Concomitant]
     Active Substance: ESCITALOPRAM OXALATE
     Indication: PRODUCT USED FOR UNKNOWN INDICATION
     Dosage: UNK

REACTIONS (9)
  - Prescribed overdose [Unknown]
  - Malaise [Recovering/Resolving]
  - Depressive symptom [Recovering/Resolving]
  - Depressed mood [Recovering/Resolving]
  - Nausea [Recovering/Resolving]
  - Blood glucose increased [Unknown]
  - Oedema peripheral [Recovered/Resolved]
  - Blood pressure decreased [Recovered/Resolved]
  - Drug titration error [Unknown]

NARRATIVE: CASE EVENT DATE: 20150715
